FAERS Safety Report 5260963-1 (Version None)
Quarter: 2007Q1

REPORT INFORMATION
  Report Type: 
  Country: None (occurrence: None)
  Receive Date: 20070309
  Receipt Date: 20070226
  Transmission Date: 20070707
  Serious: Yes (Other)
  Sender: FDA-Public Use
  Company Number: FR-NOVOPROD-260007

PATIENT
  Age: 62 Year
  Sex: Female
  Weight: 84 kg

DRUGS (2)
  1. ACTIVELLE [Suspect]
     Indication: HORMONE REPLACEMENT THERAPY
     Dates: start: 20040719, end: 20061101
  2. TAHOR [Concomitant]
     Indication: HYPERLIPIDAEMIA
     Dates: start: 20040701

REACTIONS (2)
  - METRORRHAGIA [None]
  - RESPIRATORY DISORDER [None]
